FAERS Safety Report 16761150 (Version 1)
Quarter: 2019Q3

REPORT INFORMATION
  Report Type: Spontaneous
  Country: US (occurrence: US)
  Receive Date: 20190830
  Receipt Date: 20190830
  Transmission Date: 20191005
  Serious: Yes (Other)
  Sender: FDA-Public Use
  Company Number: US-ANIPHARMA-2019-US-002062

PATIENT
  Sex: Female
  Weight: 90.72 kg

DRUGS (12)
  1. ANASTROZOLE. [Suspect]
     Active Substance: ANASTROZOLE
     Indication: PRODUCT USED FOR UNKNOWN INDICATION
  2. NYSTATIN. [Concomitant]
     Active Substance: NYSTATIN
     Dosage: 100,000UG POWDER, AS NEEDED, USES THIS OCCASIONALLY.
  3. IBUPROFEN. [Concomitant]
     Active Substance: IBUPROFEN
     Dosage: 200MG, 1-2 AS NEEDED, DOESN^T HELP FOR HER PAIN. IT^S THE WALGREEN^S IBUPROFEN, CALLER DOESN^T SEE L
  4. LISINOPRIL/HCTZ [Concomitant]
     Active Substance: HYDROCHLOROTHIAZIDE\LISINOPRIL
     Dosage: 20/25MG ONCE A DAY
  5. NIFEDIPINE. [Concomitant]
     Active Substance: NIFEDIPINE
     Dosage: 30MG TAB TWICE A DAY
  6. HYDROXYZINE [Concomitant]
     Active Substance: HYDROXYZINE HYDROCHLORIDE
     Dosage: 25MG TAB, THREE TIMES A DAY, HAS THIS IF SHE NEEDS IT BUT USUALLY TRIES TO CONTROL HER ANXIETY ON HE
  7. CALCIUM [Concomitant]
     Active Substance: CALCIUM
     Dosage: 1200MG A DAY
  8. CREAM [Concomitant]
     Active Substance: UNSPECIFIED INGREDIENT
     Dosage: AS NEEDED, ALSO HAS THIS SHE CAN APPLY FOR IF SHE GETS YEAST INFECTIONS UNDER HER BREASTS.
  9. FASLODEX [Concomitant]
     Active Substance: FULVESTRANT
     Dosage: TOOK THIS EVERY TWO WEEKS FOR SIX WEEKS AND IS NOW STARTING HER ONCE A MONTH REGIMEN. GETS THIS IN H
     Route: 058
     Dates: start: 20170724
  10. IBRANCE [Suspect]
     Active Substance: PALBOCICLIB
     Dosage: 125MG ONCE A DAY FOR 21 DAYS, 7 DAYS OFF
     Dates: start: 20170731
  11. MECLIZINE [Concomitant]
     Active Substance: MECLIZINE HYDROCHLORIDE
  12. VITAMIN D [Concomitant]
     Active Substance: VITAMIN D NOS

REACTIONS (2)
  - Neoplasm progression [Unknown]
  - Drug ineffective [Unknown]
